FAERS Safety Report 24021247 (Version 1)
Quarter: 2024Q2

REPORT INFORMATION
  Report Type: Other
  Country: US (occurrence: US)
  Receive Date: 20240627
  Receipt Date: 20240627
  Transmission Date: 20240716
  Serious: Yes (Hospitalization)
  Sender: FDA-Public Use
  Company Number: US-HLS-202400178

PATIENT
  Age: 65 Year
  Sex: Female

DRUGS (4)
  1. CLOZAPINE [Suspect]
     Active Substance: CLOZAPINE
     Indication: Schizophrenia
     Route: 065
  2. CLOZAPINE [Suspect]
     Active Substance: CLOZAPINE
     Indication: Schizophrenia
     Route: 065
  3. AMIODARONE [Interacting]
     Active Substance: AMIODARONE
     Indication: Sinus arrhythmia
     Dosage: LOADING DOSE
     Route: 048
  4. AMIODARONE [Interacting]
     Active Substance: AMIODARONE
     Indication: Sinus arrhythmia
     Dosage: MAINTENANCE DOSE
     Route: 048

REACTIONS (3)
  - Drug interaction [Unknown]
  - Psychiatric decompensation [Unknown]
  - Supraventricular tachycardia [Unknown]
